FAERS Safety Report 5485817-7 (Version None)
Quarter: 2007Q4

REPORT INFORMATION
  Report Type: 
  Country: None (occurrence: None)
  Receive Date: 20071015
  Receipt Date: 20071010
  Transmission Date: 20080405
  Serious: Yes (Other)
  Sender: FDA-Public Use
  Company Number: FR-BRISTOL-MYERS SQUIBB COMPANY-13939194

PATIENT
  Sex: Male

DRUGS (4)
  1. ABILIFY [Suspect]
     Indication: SCHIZOPHRENIA
     Dosage: INITIATED 5 OR 6 MONTHS AGO AT 5MG/DAY, INCREASED TO 10MG/DAY AND THEN TO 15MG/DAY
  2. IMOVANE [Concomitant]
     Dates: end: 20071009
  3. ATARAX [Concomitant]
  4. THERALENE [Concomitant]
     Dates: start: 20071009

REACTIONS (2)
  - FALL [None]
  - SOMNAMBULISM [None]
